FAERS Safety Report 24086696 (Version 1)
Quarter: 2024Q3

REPORT INFORMATION
  Report Type: Report from Study
  Country: CA (occurrence: CA)
  Receive Date: 20240713
  Receipt Date: 20240713
  Transmission Date: 20241016
  Serious: Yes (Other)
  Sender: ABBVIE
  Company Number: CA-ABBVIE-5836743

PATIENT
  Sex: Female

DRUGS (1)
  1. RINVOQ [Suspect]
     Active Substance: UPADACITINIB
     Indication: Crohn^s disease
     Route: 048
     Dates: start: 20240625

REACTIONS (4)
  - Catheter placement [Unknown]
  - Arthralgia [Unknown]
  - Crohn^s disease [Unknown]
  - Device dislocation [Unknown]
